FAERS Safety Report 15969328 (Version 1)
Quarter: 2019Q1

REPORT INFORMATION
  Report Type: Spontaneous
  Country: DE (occurrence: DE)
  Receive Date: 20190215
  Receipt Date: 20190215
  Transmission Date: 20190418
  Serious: Yes (Hospitalization)
  Sender: FDA-Public Use
  Company Number: PHHY2019DE034880

PATIENT
  Age: 46 Year
  Sex: Male
  Weight: 78 kg

DRUGS (8)
  1. SAR 650984 [Suspect]
     Active Substance: ISATUXIMAB
     Dosage: 10 MG/KG, QD
     Route: 042
     Dates: start: 20190124, end: 20190124
  2. SAR 650984 [Suspect]
     Active Substance: ISATUXIMAB
     Indication: PLASMA CELL MYELOMA
     Dosage: 10 MG/KG, QD
     Route: 042
     Dates: start: 20180321, end: 20180321
  3. LENALIDOMIDE [Suspect]
     Active Substance: LENALIDOMIDE
     Dosage: 15 MG, QD
     Route: 048
     Dates: start: 20190129, end: 20190129
  4. DEXAMETHASONE. [Suspect]
     Active Substance: DEXAMETHASONE
     Dosage: 20 MG, QD
     Route: 042
     Dates: start: 20190124
  5. LENALIDOMIDE [Suspect]
     Active Substance: LENALIDOMIDE
     Indication: PLASMA CELL MYELOMA
     Dosage: 15 MG, QD
     Route: 048
     Dates: start: 20180321, end: 20180321
  6. DEXAMETHASONE. [Suspect]
     Active Substance: DEXAMETHASONE
     Indication: PLASMA CELL MYELOMA
     Dosage: 20 MG, QD
     Route: 042
     Dates: start: 20180321, end: 20180321
  7. CARFILZOMIB [Suspect]
     Active Substance: CARFILZOMIB
     Indication: PLASMA CELL MYELOMA
     Dosage: 51.57 MG, UNK
     Route: 042
     Dates: start: 20180321, end: 20180321
  8. CARFILZOMIB [Suspect]
     Active Substance: CARFILZOMIB
     Dosage: 51.57 MG, UNK
     Route: 042
     Dates: start: 20190125, end: 20190125

REACTIONS (1)
  - Infection [Not Recovered/Not Resolved]

NARRATIVE: CASE EVENT DATE: 20190130
